FAERS Safety Report 22065776 (Version 2)
Quarter: 2023Q2

REPORT INFORMATION
  Report Type: Spontaneous
  Country: US (occurrence: US)
  Receive Date: 20230306
  Receipt Date: 20230404
  Transmission Date: 20230721
  Serious: No
  Sender: FDA-Public Use
  Company Number: US-PFIZER INC-PV202300027865

PATIENT
  Age: 28 Year
  Sex: Female

DRUGS (1)
  1. INLYTA [Suspect]
     Active Substance: AXITINIB
     Indication: Sarcoma
     Dosage: 5 MG

REACTIONS (4)
  - Somnolence [Unknown]
  - Off label use [Unknown]
  - Nausea [Unknown]
  - Decreased appetite [Unknown]
